FAERS Safety Report 15119268 (Version 1)
Quarter: 2018Q3

REPORT INFORMATION
  Report Type: Spontaneous
  Country: US (occurrence: US)
  Receive Date: 20180612
  Receipt Date: 20180612
  Transmission Date: 20181010
  Serious: Yes (Hospitalization)
  Sender: FDA-Public Use
  Company Number: None

PATIENT
  Age: 60 Year
  Sex: Male
  Weight: 66.8 kg

DRUGS (9)
  1. FLUOXETINE [Concomitant]
     Active Substance: FLUOXETINE HYDROCHLORIDE
  2. TOPAMAX [Concomitant]
     Active Substance: TOPIRAMATE
  3. PROTONIX [Concomitant]
     Active Substance: PANTOPRAZOLE SODIUM
  4. OFIRMEV [Concomitant]
     Active Substance: ACETAMINOPHEN
  5. BUSPAR [Concomitant]
     Active Substance: BUSPIRONE HYDROCHLORIDE
  6. ETOMIDATE. [Concomitant]
     Active Substance: ETOMIDATE
  7. HYDROMORPHONE [Suspect]
     Active Substance: HYDROMORPHONE
     Indication: CHEST PAIN
     Dosage: RECENT
     Route: 042
  8. LEVOTHYROXINE. [Concomitant]
     Active Substance: LEVOTHYROXINE
  9. IOHEXOL [Concomitant]
     Active Substance: IOHEXOL

REACTIONS (7)
  - Bronchial secretion retention [None]
  - Somnolence [None]
  - Therapy change [None]
  - Respiratory distress [None]
  - Hypoxia [None]
  - Hypoventilation [None]
  - Miosis [None]

NARRATIVE: CASE EVENT DATE: 20180304
